FAERS Safety Report 6016537-8 (Version None)
Quarter: 2008Q4

REPORT INFORMATION
  Report Type: 
  Country: None (occurrence: None)
  Receive Date: 20081222
  Receipt Date: 20081217
  Transmission Date: 20090506
  Serious: Yes (Other)
  Sender: FDA-Public Use
  Company Number: US-JNJFOC-20081205209

PATIENT
  Age: 23 Year
  Sex: Female
  Weight: 45.36 kg

DRUGS (3)
  1. ORTHO TRI-CYCLEN LO [Suspect]
     Indication: CONTRACEPTION
     Route: 048
  2. LEXAPRO [Concomitant]
     Indication: DEPRESSION
     Route: 048
  3. SEROQUEL [Concomitant]
     Indication: ANXIETY
     Route: 048

REACTIONS (3)
  - DENTAL OPERATION [None]
  - DRUG ADMINISTRATION ERROR [None]
  - MENORRHAGIA [None]
